FAERS Safety Report 24145211 (Version 1)
Quarter: 2024Q3

REPORT INFORMATION
  Report Type: Spontaneous
  Country: US (occurrence: US)
  Receive Date: 20240729
  Receipt Date: 20240729
  Transmission Date: 20241016
  Serious: No
  Sender: APOTEX
  Company Number: US-APOTEX-2023AP014149

PATIENT
  Age: 67 Year
  Sex: Male

DRUGS (2)
  1. GLIPIZIDE [Suspect]
     Active Substance: GLIPIZIDE
     Indication: Product used for unknown indication
     Dosage: SEVERAL PILLS
     Route: 048
  2. OXYCODONE [Concomitant]
     Active Substance: OXYCODONE
     Indication: Product used for unknown indication
     Dosage: UNK
     Route: 065

REACTIONS (2)
  - Accidental overdose [Unknown]
  - Hypoglycaemia [Recovered/Resolved]
